FAERS Safety Report 9500536 (Version 1)
Quarter: 2013Q3

REPORT INFORMATION
  Report Type: Spontaneous
  Country: US (occurrence: US)
  Receive Date: 20130905
  Receipt Date: 20130905
  Transmission Date: 20140515
  Serious: No
  Sender: FDA-Public Use
  Company Number: US-009507513-1308USA014108

PATIENT
  Age: 31 Year
  Sex: Female

DRUGS (1)
  1. GANIRELIX ACETATE INJECTION [Suspect]
     Indication: ASSISTED FERTILISATION
     Dosage: FOR 10 DAYS, DAILY
     Dates: start: 201304, end: 2013

REACTIONS (4)
  - Contusion [Recovering/Resolving]
  - Needle issue [Unknown]
  - Needle issue [Unknown]
  - Device difficult to use [Unknown]
